FAERS Safety Report 8453767-X (Version None)
Quarter: 2012Q2

REPORT INFORMATION
  Report Type: 
  Country: None (occurrence: None)
  Receive Date: 20120620
  Receipt Date: 20120611
  Transmission Date: 20120825
  Serious: Yes (Other)
  Sender: FDA-Public Use
  Company Number: US-ASTRAZENECA-2012SE39254

PATIENT
  Sex: Male

DRUGS (1)
  1. NEXIUM [Suspect]
     Route: 048

REACTIONS (7)
  - PHARYNGEAL DISORDER [None]
  - FLUID RETENTION [None]
  - FLATULENCE [None]
  - CONVULSION [None]
  - BACK DISORDER [None]
  - ULCER [None]
  - GASTROOESOPHAGEAL REFLUX DISEASE [None]
